FAERS Safety Report 24458177 (Version 2)
Quarter: 2024Q4

REPORT INFORMATION
  Report Type: Report from Study
  Country: US (occurrence: US)
  Receive Date: 20241018
  Receipt Date: 20241106
  Transmission Date: 20250114
  Serious: Yes (Other)
  Sender: TAKEDA
  Company Number: US-TAKEDA-2024TUS013708

PATIENT
  Age: 62 Year
  Sex: Male
  Weight: 59 kg

DRUGS (9)
  1. BRIGATINIB [Suspect]
     Active Substance: BRIGATINIB
     Indication: Neurofibromatosis
     Dosage: 90 MILLIGRAM
     Route: 048
  2. BRIGATINIB [Suspect]
     Active Substance: BRIGATINIB
     Indication: Cranial nerve neoplasm benign
     Dosage: 180 MILLIGRAM, QD
     Route: 048
  3. BRIGATINIB [Suspect]
     Active Substance: BRIGATINIB
     Indication: Brain compression
     Dosage: 180 MILLIGRAM, QD
     Route: 048
  4. BRIGATINIB [Suspect]
     Active Substance: BRIGATINIB
     Indication: Spinal cord disorder
     Dosage: 180 MILLIGRAM, QD
     Route: 048
  5. BRIGATINIB [Suspect]
     Active Substance: BRIGATINIB
     Indication: Brain neoplasm benign
     Dosage: 180 MILLIGRAM
     Route: 048
     Dates: start: 20240214, end: 20240507
  6. BRIGATINIB [Suspect]
     Active Substance: BRIGATINIB
     Indication: Haemangioblastoma
     Dosage: 180 MILLIGRAM
     Route: 048
     Dates: start: 20240215, end: 20240506
  7. BRIGATINIB [Suspect]
     Active Substance: BRIGATINIB
     Dosage: 180 MILLIGRAM, QD
     Route: 048
     Dates: end: 20240627
  8. BRIGATINIB [Suspect]
     Active Substance: BRIGATINIB
     Dosage: 150 MILLIGRAM, QD
     Route: 048
     Dates: start: 20240702
  9. BRIGATINIB [Suspect]
     Active Substance: BRIGATINIB
     Dosage: 90 MILLIGRAM, QD
     Route: 048

REACTIONS (12)
  - Deafness [Not Recovered/Not Resolved]
  - Facial paralysis [Not Recovered/Not Resolved]
  - Hypoacusis [Unknown]
  - Product prescribing issue [Unknown]
  - Product use in unapproved indication [Recovered/Resolved]
  - Constipation [Unknown]
  - Rash papular [Unknown]
  - Urticaria [Unknown]
  - Mouth ulceration [Recovering/Resolving]
  - Photosensitivity reaction [Unknown]
  - Rash [Not Recovered/Not Resolved]
  - Stomatitis [Unknown]

NARRATIVE: CASE EVENT DATE: 20240501
